FAERS Safety Report 6932337-6 (Version None)
Quarter: 2010Q3

REPORT INFORMATION
  Report Type: 
  Country: None (occurrence: None)
  Receive Date: 20100819
  Receipt Date: 20100803
  Transmission Date: 20110219
  Serious: Yes (Hospitalization, Other)
  Sender: FDA-Public Use
  Company Number: US-BAYER-200942249NA

PATIENT
  Age: 34 Year
  Sex: Female
  Weight: 80 kg

DRUGS (4)
  1. YAZ [Suspect]
     Indication: ACNE
     Route: 048
     Dates: start: 20090501, end: 20090701
  2. YASMIN [Suspect]
     Indication: ACNE
     Route: 048
     Dates: start: 20010901, end: 20050701
  3. YASMIN [Suspect]
     Route: 048
     Dates: start: 20070801, end: 20080401
  4. DROSPIRENONE AND EHTINYL ESTRADIOL [Suspect]
     Indication: ORAL CONTRACEPTION
     Route: 048
     Dates: start: 20080701, end: 20081201

REACTIONS (7)
  - ABDOMINAL PAIN [None]
  - GALLBLADDER INJURY [None]
  - HEPATIC FUNCTION ABNORMAL [None]
  - JAUNDICE [None]
  - LIVER INJURY [None]
  - NAUSEA [None]
  - PAIN [None]
